FAERS Safety Report 13861608 (Version 2)
Quarter: 2017Q3

REPORT INFORMATION
  Report Type: Spontaneous
  Country: US (occurrence: JP)
  Receive Date: 20170811
  Receipt Date: 20170901
  Transmission Date: 20171127
  Serious: Yes (Other)
  Sender: FDA-Public Use
  Company Number: US-SUNOVION-2017SUN003535

PATIENT
  Sex: Male
  Weight: 60 kg

DRUGS (4)
  1. INDACATEROL [Suspect]
     Active Substance: INDACATEROL
     Indication: EMPHYSEMA
     Dosage: 150 ?G, UNK
     Route: 055
     Dates: end: 20170109
  2. TAMSULOSIN [Concomitant]
     Active Substance: TAMSULOSIN
  3. INDACATEROL [Suspect]
     Active Substance: INDACATEROL
     Indication: CHRONIC OBSTRUCTIVE PULMONARY DISEASE
     Dosage: 150 ?G, UNK
     Route: 055
     Dates: start: 20141003
  4. HARNAL [Concomitant]
     Active Substance: TAMSULOSIN HYDROCHLORIDE

REACTIONS (2)
  - Supraventricular tachycardia [Unknown]
  - Concomitant disease aggravated [Unknown]
